FAERS Safety Report 12274397 (Version 1)
Quarter: 2016Q2

REPORT INFORMATION
  Report Type: Spontaneous
  Country: US (occurrence: US)
  Receive Date: 20160415
  Receipt Date: 20160415
  Transmission Date: 20160815
  Serious: No
  Sender: FDA-Public Use
  Company Number: US-ALLERGAN-1511286US

PATIENT
  Sex: Female
  Weight: 61.22 kg

DRUGS (2)
  1. LEVOTHYROXINE. [Concomitant]
     Active Substance: LEVOTHYROXINE
     Indication: THYROID DISORDER
     Dosage: 0.125 MG DAILY
  2. LATISSE [Suspect]
     Active Substance: BIMATOPROST
     Indication: GROWTH OF EYELASHES
     Dosage: 1 GTT TO EACH UPPER EYELID, 3 X A WEEK
     Route: 061
     Dates: start: 2014, end: 201504

REACTIONS (1)
  - Eyelash discolouration [Not Recovered/Not Resolved]

NARRATIVE: CASE EVENT DATE: 2015
